FAERS Safety Report 7151862 (Version 4)
Quarter: 2014Q2

REPORT INFORMATION
  Report Type: Spontaneous
  Country: DE (occurrence: DE)
  Receive Date: 20091019
  Receipt Date: 20140501
  Transmission Date: 20141212
  Serious: Yes (Other)
  Sender: FDA-Public Use
  Company Number: DE-JNJFOC-20091002579

PATIENT
  Age: 51 Year
  Sex: Male

DRUGS (3)
  1. INFLIXIMAB [Suspect]
     Indication: PSORIASIS
     Dosage: WEEKS 0,2,6 AND 14 RESPECTIVELY, SHORT INFUSIONS, THEN 6 INFUSIONS AT 8 WEEK INTERVALS (450 MG)
     Route: 042
     Dates: start: 200510
  2. HUMIRA [Suspect]
     Indication: PSORIASIS
     Route: 058
     Dates: start: 2007
  3. ETANERCEPT [Suspect]
     Indication: PSORIASIS
     Dates: start: 200706

REACTIONS (4)
  - Malignant melanoma [Recovering/Resolving]
  - Keratoacanthoma [Recovering/Resolving]
  - Psoriasis [Unknown]
  - Therapeutic response decreased [Unknown]
